FAERS Safety Report 5156745-1 (Version None)
Quarter: 2006Q4

REPORT INFORMATION
  Report Type: 
  Country: None (occurrence: None)
  Receive Date: 20061122
  Receipt Date: 20060915
  Transmission Date: 20070319
  Serious: Yes (Other)
  Sender: FDA-Public Use
  Company Number: US-MERCK-0609USA03699

PATIENT
  Age: 37 Year
  Sex: Female
  Weight: 88 kg

DRUGS (3)
  1. ZETIA [Suspect]
     Indication: BLOOD CHOLESTEROL INCREASED
     Route: 048
     Dates: start: 20060705, end: 20060817
  2. METFORMIN [Concomitant]
     Route: 048
     Dates: start: 20030101
  3. YASMIN [Concomitant]
     Route: 048
     Dates: start: 20030101

REACTIONS (9)
  - ABDOMINAL PAIN [None]
  - CHROMATURIA [None]
  - FAECES DISCOLOURED [None]
  - FLANK PAIN [None]
  - HEPATIC CYST [None]
  - HEPATIC NEOPLASM [None]
  - STOMACH DISCOMFORT [None]
  - URINARY TRACT INFECTION [None]
  - VOMITING [None]
